FAERS Safety Report 25699702 (Version 2)
Quarter: 2025Q3

REPORT INFORMATION
  Report Type: Report from Study
  Country: JP (occurrence: JP)
  Receive Date: 20250819
  Receipt Date: 20250929
  Transmission Date: 20251021
  Serious: Yes (Hospitalization)
  Sender: EISAI
  Company Number: JP-009507513-2319641

PATIENT
  Age: 82 Year
  Sex: Female

DRUGS (9)
  1. LENVATINIB [Suspect]
     Active Substance: LENVATINIB
     Indication: Angiosarcoma
     Route: 048
     Dates: start: 20250728, end: 20250803
  2. PEMBROLIZUMAB [Suspect]
     Active Substance: PEMBROLIZUMAB
     Indication: Angiosarcoma
     Route: 042
     Dates: start: 20250728
  3. LANSOPRAZOLE [Concomitant]
     Active Substance: LANSOPRAZOLE
     Indication: Prophylaxis
     Route: 048
  4. BISOPROLOL FUMARATE [Concomitant]
     Active Substance: BISOPROLOL FUMARATE
     Indication: Atrial fibrillation
     Dosage: 2.5 MG, 0.625 MGX2, QD
     Route: 048
  5. DONEPEZIL HYDROCHLORIDE [Concomitant]
     Active Substance: DONEPEZIL HYDROCHLORIDE
     Indication: Prophylaxis
     Route: 048
  6. SUVOREXANT [Concomitant]
     Active Substance: SUVOREXANT
     Indication: Insomnia
     Route: 048
  7. BILASTINE [Concomitant]
     Active Substance: BILASTINE
     Indication: Angiosarcoma
     Route: 048
  8. PURIFIED SODIUM HYALURONATE [Concomitant]
     Indication: Angiosarcoma
     Route: 047
  9. OFLOXACIN [Concomitant]
     Active Substance: OFLOXACIN
     Indication: Angiosarcoma
     Route: 061

REACTIONS (1)
  - Pneumonia aspiration [Not Recovered/Not Resolved]

NARRATIVE: CASE EVENT DATE: 20250808
